FAERS Safety Report 7352036-9 (Version None)
Quarter: 2011Q1

REPORT INFORMATION
  Report Type: 
  Country: None (occurrence: None)
  Receive Date: 20110309
  Receipt Date: 20110309
  Transmission Date: 20110831
  Serious: Yes (Hospitalization)
  Sender: FDA-Public Use
  Company Number: None

PATIENT
  Age: 79 Year
  Sex: Male
  Weight: 71.4 kg

DRUGS (1)
  1. TRAMADOL HCL [Suspect]
     Dosage: 50 MG TID PO
     Route: 048
     Dates: start: 20110223, end: 20110226

REACTIONS (5)
  - NAUSEA [None]
  - HALLUCINATION [None]
  - CONFUSIONAL STATE [None]
  - HYPOPHAGIA [None]
  - VOMITING [None]
